FAERS Safety Report 5776447-8 (Version None)
Quarter: 2008Q2

REPORT INFORMATION
  Report Type: 
  Country: None (occurrence: None)
  Receive Date: 20080618
  Receipt Date: 20021007
  Transmission Date: 20081010
  Serious: Yes (Hospitalization)
  Sender: FDA-Public Use
  Company Number: FR-BAXTER-700362

PATIENT
  Age: 29 Year
  Sex: Male
  Weight: 64 kg

DRUGS (13)
  1. EXTRANEAL [Suspect]
     Indication: PERITONEAL MEMBRANE FAILURE
     Route: 033
     Dates: start: 19971202, end: 20020131
  2. CALCITRIOL [Concomitant]
     Dates: start: 19991027
  3. FUROSEMIDE [Concomitant]
     Dates: start: 19971028, end: 20011218
  4. HYDROCHLOROTHIAZIDE [Concomitant]
     Dates: start: 19971028, end: 20011218
  5. TELMISARTAN [Concomitant]
     Dates: start: 19971025, end: 20010801
  6. ATORVASTATIN [Concomitant]
     Dates: start: 19980908, end: 20000711
  7. GEMFIBROZIL [Concomitant]
     Dates: start: 19980303, end: 19981027
  8. CALCIUM [Concomitant]
     Dates: start: 19990930
  9. CAPTOPRIL [Concomitant]
     Dates: start: 19970605, end: 20000711
  10. ENALAPRIL MALEATE [Concomitant]
     Dates: start: 20000711
  11. EPO ALPHA [Concomitant]
     Route: 058
     Dates: start: 19990930, end: 20020806
  12. RILMENIDINE [Concomitant]
     Dates: start: 19971028
  13. RENAGEL [Concomitant]
     Dates: start: 20020305

REACTIONS (1)
  - CYTOLYTIC HEPATITIS [None]
